FAERS Safety Report 7255792-3 (Version None)
Quarter: 2011Q1

REPORT INFORMATION
  Report Type: 
  Country: None (occurrence: None)
  Receive Date: 20110129
  Receipt Date: 20100826
  Transmission Date: 20110831
  Serious: No
  Sender: FDA-Public Use
  Company Number: US-ABBOTT-10P-163-0668065-00

PATIENT
  Sex: Female
  Weight: 90.8 kg

DRUGS (4)
  1. IMURAN [Concomitant]
     Indication: CROHN'S DISEASE
  2. IRON [Concomitant]
     Indication: PRODUCT USED FOR UNKNOWN INDICATION
  3. HUMIRA [Suspect]
     Indication: CROHN'S DISEASE
     Dates: start: 20100801
  4. HUMIRA [Suspect]
     Indication: RHEUMATOID ARTHRITIS

REACTIONS (5)
  - PAIN [None]
  - FATIGUE [None]
  - RHINORRHOEA [None]
  - COUGH [None]
  - ARTHRITIS [None]
